FAERS Safety Report 4621650-3 (Version None)
Quarter: 2005Q1

REPORT INFORMATION
  Report Type: 
  Country: None (occurrence: None)
  Receive Date: 20050328
  Receipt Date: 20040722
  Transmission Date: 20050727
  Serious: Yes (Death)
  Sender: FDA-Public Use
  Company Number: 10142

PATIENT
  Age: 75 Year
  Sex: Male

DRUGS (1)
  1. CYTARABINE [Suspect]
     Indication: ACUTE LEUKAEMIA

REACTIONS (2)
  - NEUTROPENIA [None]
  - SEPSIS [None]
